FAERS Safety Report 12145876 (Version 4)
Quarter: 2018Q1

REPORT INFORMATION
  Report Type: Spontaneous
  Country: ES (occurrence: ES)
  Receive Date: 20160304
  Receipt Date: 20180301
  Transmission Date: 20180508
  Serious: Yes (Hospitalization, Other)
  Sender: FDA-Public Use
  Company Number: ES-ALEXION PHARMACEUTICALS INC-A201601433

PATIENT
  Sex: Male

DRUGS (6)
  1. SOLIRIS [Suspect]
     Active Substance: ECULIZUMAB
     Dosage: 2 DOSES OF 300 MG
     Route: 042
  2. SOLIRIS [Suspect]
     Active Substance: ECULIZUMAB
     Dosage: 600 MG, EVERY 15 DAYS THEREAFTER
     Route: 042
  3. SOLIRIS [Suspect]
     Active Substance: ECULIZUMAB
     Dosage: 300 MG, Q2W
     Route: 042
     Dates: start: 201408
  4. SOLIRIS [Suspect]
     Active Substance: ECULIZUMAB
     Dosage: 300 MG, Q2W UNTI HE REACHED 20 KG
     Route: 042
     Dates: end: 201405
  5. SOLIRIS [Suspect]
     Active Substance: ECULIZUMAB
     Indication: HAEMOLYTIC URAEMIC SYNDROME
     Dosage: 300 MG, EVERY 3 WEEKS UNTIL HE REACHED 10 KGS
     Route: 042
     Dates: start: 20111126
  6. SOLIRIS [Suspect]
     Active Substance: ECULIZUMAB
     Dosage: 300 MG, EVERY 15 DAYS
     Route: 042

REACTIONS (16)
  - Renal failure [Recovered/Resolved]
  - Blood lactate dehydrogenase increased [Recovered/Resolved]
  - Cholelithiasis [Unknown]
  - Ear infection [Unknown]
  - Osteonecrosis [Unknown]
  - Thrombotic microangiopathy [Unknown]
  - Bilirubinuria [Unknown]
  - Blood urea increased [Recovered/Resolved]
  - Proteinuria [Unknown]
  - Underweight [Unknown]
  - Febrile infection [Unknown]
  - Gastroenteritis rotavirus [Unknown]
  - Thrombocytopenia [Recovered/Resolved]
  - Milk allergy [Unknown]
  - Haemolysis [Recovered/Resolved]
  - Gastritis [Unknown]
